FAERS Safety Report 5578594-2 (Version None)
Quarter: 2007Q4

REPORT INFORMATION
  Report Type: 
  Country: None (occurrence: None)
  Receive Date: 20071231
  Receipt Date: 20071226
  Transmission Date: 20080405
  Serious: Yes (Hospitalization, Other)
  Sender: FDA-Public Use
  Company Number: PHBS2007JP21268

PATIENT
  Age: 11 Year
  Sex: Female
  Weight: 46 kg

DRUGS (13)
  1. CYCLOPHOSPHAMIDE [Concomitant]
     Dosage: UNK, UNK
     Route: 065
     Dates: start: 19960101
  2. PREDNISOLONE [Concomitant]
     Indication: NEPHROTIC SYNDROME
     Dosage: UNK, UNK
     Route: 048
     Dates: start: 19960101
  3. PREDNISOLONE [Concomitant]
     Dosage: 60 MG/D
     Dates: start: 20051101
  4. PREDNISOLONE [Concomitant]
     Dosage: UNK, UNK
     Dates: start: 20051216
  5. PREDNISOLONE [Concomitant]
     Dosage: 20 MG/D
     Dates: end: 20051101
  6. PREDNISOLONE [Concomitant]
     Dosage: 30 MG/D
     Dates: start: 20051101
  7. METHYLPREDNISOLONE [Concomitant]
     Indication: NEPHROTIC SYNDROME
     Dosage: PULSE THERAPY
     Route: 042
     Dates: start: 19960101
  8. METHYLPREDNISOLONE [Concomitant]
     Dosage: PULSE THERAPY
     Dates: start: 20051101
  9. METHYLPREDNISOLONE [Concomitant]
     Dosage: PULSE THERAPY
     Dates: start: 20051220
  10. METHYLPREDNISOLONE [Concomitant]
     Dosage: PULSE THERAPY
     Dates: start: 20040601
  11. CYCLOSPORINE [Suspect]
     Indication: NEPHROTIC SYNDROME
     Route: 048
  12. CYCLOSPORINE [Suspect]
     Route: 048
     Dates: start: 20040601
  13. CYCLOSPORINE [Suspect]
     Dosage: UNK, UNK
     Route: 048
     Dates: start: 20060105, end: 20060101

REACTIONS (24)
  - ACINETOBACTER BACTERAEMIA [None]
  - BLOOD CREATININE INCREASED [None]
  - CONVULSION [None]
  - DISEASE PROGRESSION [None]
  - FOCAL GLOMERULOSCLEROSIS [None]
  - GLOMERULONEPHRITIS MINIMAL LESION [None]
  - HAEMODIALYSIS [None]
  - HEADACHE [None]
  - HYPERCHOLESTEROLAEMIA [None]
  - HYPERTENSION [None]
  - HYPOALBUMINAEMIA [None]
  - MALAISE [None]
  - OEDEMA [None]
  - OLIGURIA [None]
  - PERITONEAL DIALYSIS [None]
  - PLEURAL EFFUSION [None]
  - PROTEINURIA [None]
  - PYREXIA [None]
  - RENAL FAILURE [None]
  - RENAL IMPAIRMENT [None]
  - RESPIRATORY DISORDER [None]
  - SEPSIS [None]
  - URINE OUTPUT DECREASED [None]
  - WEIGHT INCREASED [None]
